FAERS Safety Report 18228763 (Version 1)
Quarter: 2020Q3

REPORT INFORMATION
  Report Type: Spontaneous
  Country: US (occurrence: US)
  Receive Date: 20200903
  Receipt Date: 20200903
  Transmission Date: 20201103
  Serious: Yes (Death, Hospitalization, Other)
  Sender: FDA-Public Use
  Company Number: US-PFIZER INC-2020116789

PATIENT
  Age: 71 Year
  Sex: Female

DRUGS (3)
  1. RAPAMUNE [Suspect]
     Active Substance: SIROLIMUS
     Indication: ORGAN TRANSPLANT
     Dosage: 2 MG, 1X/DAY
  2. RAPAMUNE [Suspect]
     Active Substance: SIROLIMUS
     Indication: BONE MARROW TRANSPLANT REJECTION
     Dosage: 1 MG, UNK
  3. RAPAMUNE [Suspect]
     Active Substance: SIROLIMUS
     Dosage: 2 MG, 1X/DAY
     Dates: start: 20190509

REACTIONS (3)
  - Off label use [Unknown]
  - Product use in unapproved indication [Unknown]
  - Pneumonia [Fatal]
